FAERS Safety Report 22074377 (Version 4)
Quarter: 2023Q4

REPORT INFORMATION
  Report Type: Spontaneous
  Country: US (occurrence: US)
  Receive Date: 20230308
  Receipt Date: 20231121
  Transmission Date: 20240110
  Serious: Yes (Other)
  Sender: FDA-Public Use
  Company Number: US-PFIZER INC-202300094735

PATIENT
  Sex: Female

DRUGS (4)
  1. RUXIENCE [Suspect]
     Active Substance: RITUXIMAB-PVVR
     Indication: Multiple sclerosis
     Dosage: TWICE EVERY 6 MONTHS, TWICE 2 WEEKS APART
  2. RUXIENCE [Suspect]
     Active Substance: RITUXIMAB-PVVR
     Dosage: 2 IN APR
     Dates: start: 202204
  3. RUXIENCE [Suspect]
     Active Substance: RITUXIMAB-PVVR
     Dosage: 1 IN SEP
     Dates: start: 202209
  4. RUXIENCE [Suspect]
     Active Substance: RITUXIMAB-PVVR
     Dosage: HAD 3 BEFORE

REACTIONS (11)
  - CD19 antigen loss [Not Recovered/Not Resolved]
  - Alopecia [Not Recovered/Not Resolved]
  - Skin disorder [Not Recovered/Not Resolved]
  - T-lymphocyte count decreased [Unknown]
  - Urinary tract disorder [Unknown]
  - Urinary tract infection [Unknown]
  - Vaginal discharge [Unknown]
  - Atrophic vulvovaginitis [Unknown]
  - Back pain [Unknown]
  - Pelvic pain [Unknown]
  - Off label use [Unknown]
